FAERS Safety Report 5044283-6 (Version None)
Quarter: 2006Q2

REPORT INFORMATION
  Report Type: 
  Country: None (occurrence: None)
  Receive Date: 20060629
  Receipt Date: 20060621
  Transmission Date: 20061013
  Serious: Yes (Other)
  Sender: FDA-Public Use
  Company Number: 2006078506

PATIENT
  Age: 44 Year
  Sex: Female

DRUGS (2)
  1. SERTRALINE [Suspect]
     Indication: DEPRESSION
     Dosage: 50 MG, ORAL
     Route: 048
  2. FLUOXETINE [Concomitant]

REACTIONS (3)
  - DIZZINESS [None]
  - INJURY ASPHYXIATION [None]
  - TREMOR [None]
